FAERS Safety Report 5293777-7 (Version None)
Quarter: 2007Q2

REPORT INFORMATION
  Report Type: 
  Country: None (occurrence: None)
  Receive Date: 20070404
  Receipt Date: 20070321
  Transmission Date: 20071010
  Serious: Yes (Hospitalization)
  Sender: FDA-Public Use
  Company Number: 430002N07USA

PATIENT
  Sex: Female
  Weight: 63 kg

DRUGS (16)
  1. NOVANTRONE [Suspect]
     Dosage: SEE IMAGE;  INTRAVENOUS (NOT OTHERWISE SPECIFIED)
     Route: 042
     Dates: start: 20010412, end: 20010412
  2. NOVANTRONE [Suspect]
     Dosage: SEE IMAGE;  INTRAVENOUS (NOT OTHERWISE SPECIFIED)
     Route: 042
     Dates: start: 20020613, end: 20020613
  3. NOVANTRONE [Suspect]
     Dosage: SEE IMAGE;  INTRAVENOUS (NOT OTHERWISE SPECIFIED)
     Route: 042
     Dates: start: 20020912, end: 20020912
  4. NOVANTRONE [Suspect]
     Dosage: SEE IMAGE;  INTRAVENOUS (NOT OTHERWISE SPECIFIED)
     Route: 042
     Dates: start: 20030117, end: 20030117
  5. NOVANTRONE [Suspect]
     Dosage: SEE IMAGE;  INTRAVENOUS (NOT OTHERWISE SPECIFIED)
     Route: 042
     Dates: start: 20030501, end: 20030501
  6. NOVANTRONE [Suspect]
     Dosage: SEE IMAGE;  INTRAVENOUS (NOT OTHERWISE SPECIFIED)
     Route: 042
     Dates: start: 20031003, end: 20031003
  7. NOVANTRONE [Suspect]
     Dosage: SEE IMAGE;  INTRAVENOUS (NOT OTHERWISE SPECIFIED)
     Route: 042
     Dates: start: 20010802, end: 20040802
  8. OXYBUTYNIN CHLORIDE [Concomitant]
  9. CARBAMAZEPINE [Concomitant]
  10. GABAPENTIN [Concomitant]
  11. BACLOFEN [Concomitant]
  12. ATORVASTATIN CALCIUM [Concomitant]
  13. GLUCOSAMINE [Concomitant]
  14. VACCINIUM MACROCARPON [Concomitant]
  15. VITAMINS [Concomitant]
  16. LACTOBACILLUS REUTERI [Concomitant]

REACTIONS (1)
  - ACUTE PROMYELOCYTIC LEUKAEMIA [None]
